FAERS Safety Report 5674700-X (Version None)
Quarter: 2008Q1

REPORT INFORMATION
  Report Type: 
  Country: None (occurrence: None)
  Receive Date: 20080320
  Receipt Date: 20080317
  Transmission Date: 20080703
  Serious: Yes (Hospitalization)
  Sender: FDA-Public Use
  Company Number: B0512450A

PATIENT
  Age: 37 Year
  Sex: Female

DRUGS (2)
  1. KIVEXA [Suspect]
     Indication: HIV INFECTION
     Dosage: 1TAB PER DAY
     Route: 048
     Dates: start: 20051101
  2. UNKNOWN DRUG [Concomitant]

REACTIONS (8)
  - ABDOMINAL PAIN LOWER [None]
  - ABNORMAL SENSATION IN EYE [None]
  - BURNING SENSATION [None]
  - ILL-DEFINED DISORDER [None]
  - SENSORY DISTURBANCE [None]
  - SPEECH DISORDER [None]
  - TREMOR [None]
  - VISION BLURRED [None]
